FAERS Safety Report 21493641 (Version 2)
Quarter: 2022Q4

REPORT INFORMATION
  Report Type: Spontaneous
  Country: JP (occurrence: JP)
  Receive Date: 20221021
  Receipt Date: 20221028
  Transmission Date: 20230113
  Serious: Yes (Other)
  Sender: FDA-Public Use
  Company Number: JP-ORGANON-O2210JPN001546

PATIENT
  Age: 77 Year
  Sex: Female

DRUGS (1)
  1. BONALON [Suspect]
     Active Substance: ALENDRONATE SODIUM
     Dosage: 35 MILLIGRAM PER WEEK
     Route: 048
     Dates: end: 202009

REACTIONS (4)
  - Osteomyelitis [Unknown]
  - Osteonecrosis of jaw [Unknown]
  - Cellulitis [Unknown]
  - Abscess neck [Unknown]
